FAERS Safety Report 8524615-4 (Version None)
Quarter: 2012Q3

REPORT INFORMATION
  Report Type: 
  Country: None (occurrence: None)
  Receive Date: 20120720
  Receipt Date: 20120702
  Transmission Date: 20120928
  Serious: No
  Sender: FDA-Public Use
  Company Number: US-009507513-1207USA001166

PATIENT

DRUGS (1)
  1. AZITHROMYCIN [Suspect]
     Route: 047

REACTIONS (3)
  - PRODUCT PACKAGING QUANTITY ISSUE [None]
  - NO ADVERSE EVENT [None]
  - DRUG DOSE OMISSION [None]
